FAERS Safety Report 14885689 (Version 1)
Quarter: 2018Q2

REPORT INFORMATION
  Report Type: Report from Study
  Country: US (occurrence: US)
  Receive Date: 20180511
  Receipt Date: 20180511
  Transmission Date: 20180711
  Serious: Yes (Hospitalization)
  Sender: FDA-Public Use
  Company Number: US-VIFOR (INTERNATIONAL) INC.-VIT-2017-01596

PATIENT
  Age: 65 Year
  Sex: Female
  Weight: 108.96 kg

DRUGS (21)
  1. VELTASSA [Suspect]
     Active Substance: PATIROMER
     Route: 048
     Dates: start: 20170217
  2. HYDRALAZINE [Concomitant]
     Active Substance: HYDRALAZINE HYDROCHLORIDE
  3. ERGOCALCIFEROL. [Concomitant]
     Active Substance: ERGOCALCIFEROL
  4. LINZESS [Concomitant]
     Active Substance: LINACLOTIDE
  5. CARVEDILOL. [Concomitant]
     Active Substance: CARVEDILOL
  6. SODIUM BICARBONATE. [Concomitant]
     Active Substance: SODIUM BICARBONATE
  7. OSELTAMIVIR [Concomitant]
     Active Substance: OSELTAMIVIR
  8. PROMETHAZINE [Concomitant]
     Active Substance: PROMETHAZINE\PROMETHAZINE HYDROCHLORIDE
  9. LANTUS [Concomitant]
     Active Substance: INSULIN GLARGINE
  10. VENTOLIN [Concomitant]
     Active Substance: ALBUTEROL SULFATE
  11. IRON [Concomitant]
     Active Substance: IRON
  12. GLYCERYL TRINITRATE [Concomitant]
     Active Substance: NITROGLYCERIN
  13. VELTASSA [Suspect]
     Active Substance: PATIROMER
     Indication: HYPERKALAEMIA
     Route: 048
     Dates: start: 201701
  14. SODIUM POLYSTYRENE SULFONATE. [Concomitant]
     Active Substance: SODIUM POLYSTYRENE SULFONATE
  15. ATORVASTATIN [Concomitant]
     Active Substance: ATORVASTATIN
  16. FUROSEMIDE. [Concomitant]
     Active Substance: FUROSEMIDE
  17. MACROGOL [Concomitant]
     Active Substance: POLYETHYLENE GLYCOLS
  18. ATENOLOL. [Concomitant]
     Active Substance: ATENOLOL
  19. KETOROLAC [Concomitant]
     Active Substance: KETOROLAC\KETOROLAC TROMETHAMINE
  20. METOPROLOL. [Concomitant]
     Active Substance: METOPROLOL
  21. PSEUDOEPHEDRINE [Concomitant]
     Active Substance: PSEUDOEPHEDRINE

REACTIONS (11)
  - Diarrhoea [Recovered/Resolved]
  - Drug administration error [Unknown]
  - Muscle spasms [Recovered/Resolved]
  - Fluid overload [Recovered/Resolved]
  - Abdominal discomfort [Not Recovered/Not Resolved]
  - Nausea [Not Recovered/Not Resolved]
  - Malaise [Not Recovered/Not Resolved]
  - Dyspnoea [Recovered/Resolved]
  - Constipation [Not Recovered/Not Resolved]
  - Drug dose omission [Unknown]
  - Influenza [Recovered/Resolved]

NARRATIVE: CASE EVENT DATE: 201701
